FAERS Safety Report 8839509 (Version 1)
Quarter: 2012Q4

REPORT INFORMATION
  Report Type: 
  Country: US (occurrence: US)
  Receive Date: 20121015
  Receipt Date: 20121015
  Transmission Date: 20130627
  Serious: Yes (Hospitalization, Other)
  Sender: FDA-Public Use
  Company Number: US-BAYER-2012-105397

PATIENT
  Age: 31 Year
  Sex: Female

DRUGS (6)
  1. YAZ [Suspect]
     Indication: MOOD SWINGS
  2. ZYRTEC [Concomitant]
     Dosage: UNK
     Dates: start: 20061023
  3. DILAUDID [Concomitant]
  4. WELLBUTRIN [Concomitant]
  5. COLACE [Concomitant]
  6. ZOFRAN [Concomitant]

REACTIONS (2)
  - Splenic infarction [None]
  - Deep vein thrombosis [None]
